FAERS Safety Report 4685142-8 (Version None)
Quarter: 2005Q2

REPORT INFORMATION
  Report Type: 
  Country: None (occurrence: None)
  Receive Date: 20050603
  Receipt Date: 20050523
  Transmission Date: 20051028
  Serious: Yes (Disabling, Other)
  Sender: FDA-Public Use
  Company Number: 2005079885

PATIENT
  Age: 50 Year
  Sex: Male

DRUGS (6)
  1. ATORVASTATIN CALCIUM [Suspect]
     Indication: ILL-DEFINED DISORDER
     Dosage: 10 MG (1 IN 1 D), ORAL
     Route: 048
     Dates: start: 20021118, end: 20040101
  2. CRESTOR [Suspect]
     Indication: ILL-DEFINED DISORDER
     Dosage: 10 MG (1 IN 1 D), ORAL
     Route: 048
     Dates: start: 20040103, end: 20040514
  3. GRAPEFRUIT JUICE (CITRUS PARADISI FRUIT JUICE) [Concomitant]
  4. CALCIPOTRIOL (CALCIPOTRIOL) [Concomitant]
  5. GLICLAZIDE (GLICLAZIDE) [Concomitant]
  6. SULFASALAZINE [Concomitant]

REACTIONS (36)
  - ACTIVITIES OF DAILY LIVING IMPAIRED [None]
  - APHASIA [None]
  - ARTHRALGIA [None]
  - ARTHRITIS [None]
  - AUTOIMMUNE DISORDER [None]
  - BACK PAIN [None]
  - CONDITION AGGRAVATED [None]
  - CONJUNCTIVITIS ALLERGIC [None]
  - DRY SKIN [None]
  - DYSGEUSIA [None]
  - HAEMORRHAGE [None]
  - HEPATOCELLULAR DAMAGE [None]
  - IMPAIRED DRIVING ABILITY [None]
  - IRRITABILITY [None]
  - LIP HAEMORRHAGE [None]
  - MALAISE [None]
  - MOBILITY DECREASED [None]
  - MOVEMENT DISORDER [None]
  - MUSCLE ATROPHY [None]
  - MUSCLE INJURY [None]
  - MYALGIA [None]
  - NASOPHARYNGITIS [None]
  - NERVE INJURY [None]
  - OCULAR HYPERAEMIA [None]
  - OEDEMA PERIPHERAL [None]
  - PAIN [None]
  - PERSONALITY DISORDER [None]
  - PSORIATIC ARTHROPATHY [None]
  - PYREXIA [None]
  - RHINORRHOEA [None]
  - SEASONAL ALLERGY [None]
  - SKIN HAEMORRHAGE [None]
  - SYNOVITIS [None]
  - TREMOR [None]
  - WEIGHT DECREASED [None]
  - WHEEZING [None]
